FAERS Safety Report 4784369-4 (Version None)
Quarter: 2005Q4

REPORT INFORMATION
  Report Type: 
  Country: None (occurrence: None)
  Receive Date: 20050929
  Receipt Date: 20050929
  Transmission Date: 20060501
  Serious: Yes (Hospitalization)
  Sender: FDA-Public Use
  Company Number: None

PATIENT
  Age: 53 Year
  Sex: Male
  Weight: 57.1532 kg

DRUGS (3)
  1. CETUXIMAB [Suspect]
     Indication: LUNG NEOPLASM MALIGNANT
     Dosage: 427 MG IV / 171 MG IV  IV DRIP
     Route: 041
     Dates: start: 20050909, end: 20050915
  2. CARBOPLATIN [Suspect]
     Indication: LUNG NEOPLASM MALIGNANT
     Dosage: 780 MG IV IV DRIP
     Route: 041
     Dates: start: 20050909, end: 20050915
  3. PACLITAXEL [Suspect]

REACTIONS (6)
  - COUGH [None]
  - FATIGUE [None]
  - HAEMOGLOBIN DECREASED [None]
  - LUNG INFILTRATION [None]
  - NAUSEA [None]
  - VOMITING [None]
